FAERS Safety Report 16990328 (Version 2)
Quarter: 2020Q1

REPORT INFORMATION
  Report Type: Spontaneous
  Country: US (occurrence: US)
  Receive Date: 20191104
  Receipt Date: 20200121
  Transmission Date: 20200409
  Serious: No
  Sender: FDA-Public Use
  Company Number: US-JNJFOC-20191038676

PATIENT
  Age: 72 Year
  Sex: Female
  Weight: 90.8 kg

DRUGS (1)
  1. NIZORAL [Suspect]
     Active Substance: KETOCONAZOLE
     Indication: DERMATITIS
     Route: 061
     Dates: start: 2018

REACTIONS (5)
  - Inappropriate schedule of product administration [Unknown]
  - Product use in unapproved indication [Unknown]
  - Off label use [Unknown]
  - Product quality issue [Unknown]
  - Product lot number issue [Unknown]

NARRATIVE: CASE EVENT DATE: 2018
